FAERS Safety Report 18704415 (Version 2)
Quarter: 2021Q1

REPORT INFORMATION
  Report Type: Spontaneous
  Country: IT (occurrence: IT)
  Receive Date: 20210106
  Receipt Date: 20210113
  Transmission Date: 20210419
  Serious: Yes (Hospitalization)
  Sender: FDA-Public Use
  Company Number: IT-TEVA-2020-IT-1864406

PATIENT
  Age: 58 Year
  Sex: Male
  Weight: 83 kg

DRUGS (6)
  1. SOLDESAM [Concomitant]
     Active Substance: DEXAMETHASONE
  2. PANTOPRAZOLE [Concomitant]
     Active Substance: PANTOPRAZOLE
  3. CARDIOASPIRIN [Concomitant]
     Active Substance: ASPIRIN
  4. CISPLATINO SANDOZ [Suspect]
     Active Substance: CISPLATIN
     Indication: BILIARY NEOPLASM
     Route: 042
     Dates: start: 20200717
  5. GEMSOL [Suspect]
     Active Substance: GEMCITABINE HYDROCHLORIDE
     Indication: BILIARY NEOPLASM
     Route: 042
     Dates: start: 20200717
  6. ONDANSETRON HYDROCHLORIDE. [Concomitant]
     Active Substance: ONDANSETRON HYDROCHLORIDE

REACTIONS (2)
  - Thrombocytopenia [Recovered/Resolved]
  - Haematemesis [Recovered/Resolved]

NARRATIVE: CASE EVENT DATE: 20201026
